FAERS Safety Report 5164010-1 (Version None)
Quarter: 2006Q4

REPORT INFORMATION
  Report Type: 
  Country: None (occurrence: None)
  Receive Date: 20061124
  Receipt Date: 20061109
  Transmission Date: 20070319
  Serious: Yes (Death)
  Sender: FDA-Public Use
  Company Number: 2006139115

PATIENT
  Age: 38 Year
  Sex: 0

DRUGS (3)
  1. ZIPRASIDONE HCL [Suspect]
  2. BUPROPION HCL [Suspect]
  3. LAMOTRIGINE [Suspect]

REACTIONS (1)
  - COMPLETED SUICIDE [None]
